FAERS Safety Report 19169853 (Version 3)
Quarter: 2022Q1

REPORT INFORMATION
  Report Type: Spontaneous
  Country: DE (occurrence: DE)
  Receive Date: 20210422
  Receipt Date: 20220309
  Transmission Date: 20220423
  Serious: Yes (Hospitalization, Other)
  Sender: FDA-Public Use
  Company Number: DE-GRIFOLS-BIG0014123

PATIENT
  Age: 2 Year
  Sex: Female
  Weight: 14.6 kg

DRUGS (4)
  1. GAMUNEX [Suspect]
     Active Substance: HUMAN IMMUNOGLOBULIN G
     Indication: Multisystem inflammatory syndrome in children
     Dosage: 30 GRAM, QD
     Route: 042
     Dates: start: 20210330, end: 20210330
  2. GAMUNEX [Suspect]
     Active Substance: HUMAN IMMUNOGLOBULIN G
     Indication: Intentional product use issue
     Dosage: 30 GRAM, QD
     Route: 042
     Dates: start: 20210401, end: 20210401
  3. CORTISONE [Concomitant]
     Active Substance: CORTISONE
     Indication: Multisystem inflammatory syndrome in children
  4. ASPIRIN [Concomitant]
     Active Substance: ASPIRIN
     Indication: Multisystem inflammatory syndrome in children

REACTIONS (6)
  - Pallor [Unknown]
  - Haemolysis [Recovering/Resolving]
  - Leukocytosis [Recovering/Resolving]
  - Blood lactate dehydrogenase increased [Unknown]
  - Haemoglobinuria [Unknown]
  - Coombs direct test positive [Unknown]

NARRATIVE: CASE EVENT DATE: 20210404
